FAERS Safety Report 25660412 (Version 1)
Quarter: 2025Q3

REPORT INFORMATION
  Report Type: Spontaneous
  Country: CN (occurrence: CN)
  Receive Date: 20250808
  Receipt Date: 20250808
  Transmission Date: 20251021
  Serious: Yes (Life-Threatening, Other)
  Sender: BAYER HEALTHCARE PHARMACEUTICALS INC.
  Company Number: CN-BAYER-2025A104870

PATIENT
  Age: 59 Year
  Sex: Female

DRUGS (2)
  1. ULTRAVIST [Suspect]
     Active Substance: IOPROMIDE
     Indication: Computerised tomogram abdomen
     Route: 042
     Dates: start: 20250721, end: 20250721
  2. ULTRAVIST [Suspect]
     Active Substance: IOPROMIDE
     Indication: Computerised tomogram thorax

REACTIONS (9)
  - Contrast media allergy [Recovering/Resolving]
  - Syncope [None]
  - Oxygen saturation decreased [Not Recovered/Not Resolved]
  - Hyperhidrosis [None]
  - Nausea [None]
  - Vomiting [None]
  - Blood pressure decreased [Recovering/Resolving]
  - Heart rate decreased [Recovering/Resolving]
  - Chills [None]

NARRATIVE: CASE EVENT DATE: 20250721
